FAERS Safety Report 16627134 (Version 1)
Quarter: 2019Q3

REPORT INFORMATION
  Report Type: Spontaneous
  Country: US (occurrence: US)
  Receive Date: 20190724
  Receipt Date: 20190724
  Transmission Date: 20191004
  Serious: Yes (Other)
  Sender: FDA-Public Use
  Company Number: US-MYLANLABS-2019M1067135

PATIENT
  Age: 35 Year
  Sex: Female
  Weight: 59 kg

DRUGS (1)
  1. EPINEPHRINE. [Suspect]
     Active Substance: EPINEPHRINE
     Indication: HYPERSENSITIVITY
     Dosage: UNK
     Route: 058
     Dates: start: 20190713, end: 20190713

REACTIONS (1)
  - Device failure [Not Recovered/Not Resolved]

NARRATIVE: CASE EVENT DATE: 201907
